FAERS Safety Report 7268606-2 (Version None)
Quarter: 2011Q1

REPORT INFORMATION
  Report Type: 
  Country: None (occurrence: None)
  Receive Date: 20110121
  Receipt Date: 20110107
  Transmission Date: 20110831
  Serious: Yes (Death)
  Sender: FDA-Public Use
  Company Number: 1000018170

PATIENT
  Age: 69 Year
  Sex: Female

DRUGS (2)
  1. HEPT-A-MYL (HEPTAMINOL HYDROCHLORIDE) (HEPTAMINOL HYDROCHLORIDE) [Concomitant]
  2. MILNACIPRAN (MILNACIPRAN HYDROCHLORIDE) (CAPSULES) [Suspect]
     Indication: DEPRESSION
     Dosage: 150 MG, ORAL
     Route: 048

REACTIONS (3)
  - ATRIAL FIBRILLATION [None]
  - ACUTE PULMONARY OEDEMA [None]
  - HYPOTENSION [None]
